FAERS Safety Report 14871550 (Version 1)
Quarter: 2018Q2

REPORT INFORMATION
  Report Type: Other
  Country: US (occurrence: US)
  Receive Date: 20180509
  Receipt Date: 20180509
  Transmission Date: 20180711
  Serious: Yes (Death)
  Sender: FDA-Public Use
  Company Number: US-B. BRAUN MEDICAL INC.-2047492

PATIENT
  Age: 19 Year
  Sex: Male

DRUGS (1)
  1. 20% MANNITOL INJECTION USP 0264-7578-10 0264-7578-20 [Suspect]
     Active Substance: MANNITOL

REACTIONS (4)
  - Bronchial hyperreactivity [None]
  - Depressed level of consciousness [None]
  - Coma [None]
  - Asthma [None]
